FAERS Safety Report 20003474 (Version 6)
Quarter: 2022Q1

REPORT INFORMATION
  Report Type: Report from Study
  Country: JP (occurrence: JP)
  Receive Date: 20211028
  Receipt Date: 20220317
  Transmission Date: 20220423
  Serious: Yes (Hospitalization)
  Sender: FDA-Public Use
  Company Number: JP-SA-2021SA352491

PATIENT
  Age: 10 Year
  Sex: Male
  Weight: 37.1 kg

DRUGS (14)
  1. DUPILUMAB [Suspect]
     Active Substance: DUPILUMAB
     Indication: Dermatitis atopic
     Route: 058
  2. HYDROCORTISONE BUTYRATE [Suspect]
     Active Substance: HYDROCORTISONE BUTYRATE
     Indication: Dermatitis atopic
     Dosage: 0.5 G, BID
     Route: 061
     Dates: start: 20210419, end: 20211013
  3. HYDROCORTISONE BUTYRATE [Suspect]
     Active Substance: HYDROCORTISONE BUTYRATE
     Dosage: 0.5 G, BID
     Route: 061
     Dates: start: 20200805, end: 20201101
  4. PROTOPIC [Concomitant]
     Active Substance: TACROLIMUS
     Indication: Dermatitis atopic
     Dosage: 0.5 G, BID (PROTOPIC OINTMENT 0.03%)
     Route: 061
     Dates: start: 20200818, end: 20211025
  5. PROTOPIC [Concomitant]
     Active Substance: TACROLIMUS
     Dosage: 4 G, BID
     Route: 061
     Dates: start: 20200818
  6. PROTOPIC [Concomitant]
     Active Substance: TACROLIMUS
     Dosage: 0.5 G, QOD (PROTOPIC OINTMENT 0.3%)
     Route: 061
     Dates: start: 20211026, end: 20211101
  7. GLYCOSAMINOGLYCANS [Concomitant]
     Active Substance: GLYCOSAMINOGLYCANS
     Indication: Dermatitis atopic
     Dosage: 6 G, BID
     Route: 061
     Dates: start: 20200805, end: 20201101
  8. GLYCOSAMINOGLYCANS [Concomitant]
     Active Substance: GLYCOSAMINOGLYCANS
     Dosage: 6 G, BID
     Route: 061
     Dates: start: 20201102
  9. MYSER [DIFLUPREDNATE] [Concomitant]
     Indication: Dermatitis atopic
     Dosage: 6 G, BID
     Route: 061
     Dates: start: 20200805, end: 20201101
  10. MYSER [DIFLUPREDNATE] [Concomitant]
     Dosage: 6 G, BID (TWICE A DAY PER 3 DAYS)
     Route: 061
     Dates: start: 20201102
  11. NIZORAL [Concomitant]
     Active Substance: KETOCONAZOLE
     Indication: Dermatitis atopic
     Dosage: 6 G, BID (TWICE A DAY PER 3 DAYS)
     Route: 061
     Dates: start: 20200808
  12. RINDERON V [Concomitant]
     Active Substance: BETAMETHASONE VALERATE
     Indication: Dermatitis atopic
     Dosage: 2.5 ML, BID
     Route: 061
     Dates: start: 20200805, end: 20201101
  13. RINDERON V [Concomitant]
     Active Substance: BETAMETHASONE VALERATE
     Dosage: 2.5 ML, BID (TWICE A DAY PER 3 DAYS)
     Route: 061
     Dates: start: 20201102
  14. XYZAL [Concomitant]
     Active Substance: LEVOCETIRIZINE DIHYDROCHLORIDE
     Indication: Dermatitis atopic
     Dosage: 2.5 MG, BID
     Route: 048
     Dates: start: 20200805

REACTIONS (1)
  - Perioral dermatitis [Recovering/Resolving]

NARRATIVE: CASE EVENT DATE: 20210419
